FAERS Safety Report 6143973-1 (Version None)
Quarter: 2009Q2

REPORT INFORMATION
  Report Type: 
  Country: None (occurrence: None)
  Receive Date: 20090406
  Receipt Date: 20090323
  Transmission Date: 20091009
  Serious: Yes (Other)
  Sender: FDA-Public Use
  Company Number: GB-JNJFOC-20090305769

PATIENT
  Age: 11 Year
  Sex: Male

DRUGS (1)
  1. TOPAMAX [Suspect]
     Indication: EPILEPSY
     Dosage: 150MG AM AND 175MG PM FOR MORE THN 1 YEAR

REACTIONS (2)
  - BLADDER DISORDER [None]
  - CRYSTAL URINE PRESENT [None]
